FAERS Safety Report 5871761-X (Version None)
Quarter: 2008Q3

REPORT INFORMATION
  Report Type: 
  Country: None (occurrence: None)
  Receive Date: 20080905
  Receipt Date: 20080826
  Transmission Date: 20090109
  Serious: Yes (Disabling)
  Sender: FDA-Public Use
  Company Number: US-ROCHE-554895

PATIENT
  Sex: Male
  Weight: 61.2 kg

DRUGS (2)
  1. ACCUTANE [Suspect]
     Route: 065
     Dates: start: 20071218, end: 20080125
  2. ZYRTEC [Concomitant]

REACTIONS (3)
  - ARTHRALGIA [None]
  - MAJOR DEPRESSION [None]
  - SUICIDAL IDEATION [None]
